FAERS Safety Report 9734148 (Version 3)
Quarter: 2015Q2

REPORT INFORMATION
  Report Type: Spontaneous
  Country: US (occurrence: US)
  Receive Date: 20131205
  Receipt Date: 20150630
  Transmission Date: 20150821
  Serious: Yes (Hospitalization, Disabling, Other)
  Sender: FDA-Public Use
  Company Number: US-009507513-1312USA001834

PATIENT
  Sex: Female

DRUGS (7)
  1. VITAMIN E [Concomitant]
     Active Substance: .ALPHA.-TOCOPHEROL
     Dosage: 1 DF, QD
     Dates: start: 2000
  2. VITAMIN D [Concomitant]
     Active Substance: CHOLECALCIFEROL
     Dosage: 1 DF, QD
     Dates: start: 2009
  3. FOSAMAX [Suspect]
     Active Substance: ALENDRONATE SODIUM
     Indication: OSTEOPOROSIS PROPHYLAXIS
     Dosage: 70 MG, QW
     Route: 048
     Dates: start: 200404, end: 20070815
  4. ALENDRONATE SODIUM. [Suspect]
     Active Substance: ALENDRONATE SODIUM
     Indication: OSTEOPOROSIS PROPHYLAXIS
     Dosage: 70 MG, QW
     Route: 048
     Dates: start: 200802, end: 2012
  5. CALCIUM (UNSPECIFIED) [Concomitant]
     Active Substance: CALCIUM
     Dosage: 1 DF, QD
     Dates: start: 2009
  6. FOSAMAX [Suspect]
     Active Substance: ALENDRONATE SODIUM
     Indication: OSTEOPOROSIS
  7. ALENDRONATE SODIUM. [Suspect]
     Active Substance: ALENDRONATE SODIUM
     Indication: OSTEOPOROSIS

REACTIONS (19)
  - Intramedullary rod insertion [Unknown]
  - Oral surgery [Unknown]
  - Low turnover osteopathy [Not Recovered/Not Resolved]
  - Tooth extraction [Unknown]
  - Hysterectomy [Unknown]
  - Impaired fasting glucose [Unknown]
  - Anaemia postoperative [Recovering/Resolving]
  - Sciatica [Unknown]
  - Hyperlipidaemia [Unknown]
  - Femur fracture [Not Recovered/Not Resolved]
  - Appendicectomy [Unknown]
  - Urinary retention postoperative [Recovered/Resolved]
  - Tooth loss [Unknown]
  - Hip fracture [Not Recovered/Not Resolved]
  - Umbilical hernia repair [Unknown]
  - Vitamin D deficiency [Unknown]
  - Blood calcium decreased [Unknown]
  - Cholecystectomy [Unknown]
  - Osteoporosis [Not Recovered/Not Resolved]

NARRATIVE: CASE EVENT DATE: 2011
